FAERS Safety Report 23289244 (Version 1)
Quarter: 2023Q4

REPORT INFORMATION
  Report Type: Spontaneous
  Country: IE (occurrence: IE)
  Receive Date: 20231212
  Receipt Date: 20231212
  Transmission Date: 20240110
  Serious: Yes (Other)
  Sender: FDA-Public Use
  Company Number: IE-BAYER-2023A172953

PATIENT
  Age: 70 Year
  Sex: Male

DRUGS (1)
  1. NUBEQA [Suspect]
     Active Substance: DAROLUTAMIDE
     Indication: Hormone-dependent prostate cancer
     Dosage: UNK
     Dates: start: 202308

REACTIONS (2)
  - Prostatic specific antigen abnormal [None]
  - Off label use [None]

NARRATIVE: CASE EVENT DATE: 20230831
